FAERS Safety Report 12940012 (Version 1)
Quarter: 2016Q4

REPORT INFORMATION
  Report Type: Spontaneous
  Country: VN (occurrence: VN)
  Receive Date: 20161115
  Receipt Date: 20161115
  Transmission Date: 20170207
  Serious: Yes (Other)
  Sender: FDA-Public Use
  Company Number: VN-ROCHE-1853262

PATIENT
  Sex: Female

DRUGS (4)
  1. DOCETAXEL. [Suspect]
     Active Substance: DOCETAXEL
     Indication: BREAST CANCER METASTATIC
     Dosage: IN CHEMO (CAPE + DOCETAXEL + BPP) AND RADIOTHERAPY
     Route: 065
     Dates: start: 201410, end: 201504
  2. FULVESTRANT [Suspect]
     Active Substance: FULVESTRANT
     Indication: BREAST CANCER METASTATIC
     Route: 065
     Dates: start: 201504, end: 201510
  3. DIAMICRON [Concomitant]
     Active Substance: GLICLAZIDE
     Indication: TYPE 2 DIABETES MELLITUS
  4. CAPECITABINE. [Suspect]
     Active Substance: CAPECITABINE
     Indication: BREAST CANCER METASTATIC
     Dosage: IN CHEMO (CAPECITABINE + DOCETAXEL + BPP) AND RADIOTHERAPY
     Route: 065
     Dates: start: 201410, end: 201504

REACTIONS (2)
  - Upper limb fracture [Unknown]
  - Therapeutic response decreased [Unknown]
